FAERS Safety Report 13005673 (Version 2)
Quarter: 2017Q1

REPORT INFORMATION
  Report Type: Spontaneous
  Country: JP (occurrence: JP)
  Receive Date: 20161207
  Receipt Date: 20170217
  Transmission Date: 20170428
  Serious: Yes (Other)
  Sender: FDA-Public Use
  Company Number: PHJP2016JP035451

PATIENT
  Sex: Female

DRUGS (1)
  1. TEGRETOL [Suspect]
     Active Substance: CARBAMAZEPINE
     Indication: MANIA
     Dosage: 200 MG, UNK
     Route: 048
     Dates: start: 2015

REACTIONS (4)
  - Nausea [Recovered/Resolved]
  - Abdominal distension [Recovered/Resolved]
  - Intestinal stenosis [Recovered/Resolved]
  - Nasopharyngitis [Unknown]

NARRATIVE: CASE EVENT DATE: 20161205
